FAERS Safety Report 5118583-5 (Version None)
Quarter: 2006Q4

REPORT INFORMATION
  Report Type: 
  Country: None (occurrence: None)
  Receive Date: 20061002
  Receipt Date: 20060921
  Transmission Date: 20070319
  Serious: Yes (Other)
  Sender: FDA-Public Use
  Company Number: PHBS2006JP14664

PATIENT
  Sex: Female
  Weight: 1.454 kg

DRUGS (2)
  1. APRESOLINE [Suspect]
     Route: 064
  2. ALDOMET [Suspect]
     Route: 064

REACTIONS (1)
  - PREMATURE BABY [None]
